FAERS Safety Report 21515904 (Version 2)
Quarter: 2022Q4

REPORT INFORMATION
  Report Type: Report from Study
  Country: US (occurrence: US)
  Receive Date: 20221027
  Receipt Date: 20221109
  Transmission Date: 20230112
  Serious: Yes (Hospitalization)
  Sender: FDA-Public Use
  Company Number: US-TEVA-2022-US-2818708

PATIENT
  Sex: Male

DRUGS (1)
  1. OCTREOTIDE [Suspect]
     Active Substance: OCTREOTIDE
     Indication: Gastrointestinal haemorrhage
     Route: 065

REACTIONS (3)
  - Gastrointestinal haemorrhage [Unknown]
  - Hypotension [Unknown]
  - Cardio-respiratory arrest [Unknown]
